FAERS Safety Report 4988365-3 (Version None)
Quarter: 2006Q2

REPORT INFORMATION
  Report Type: 
  Country: None (occurrence: None)
  Receive Date: 20060502
  Receipt Date: 20060428
  Transmission Date: 20061013
  Serious: Yes (Other)
  Sender: FDA-Public Use
  Company Number: US-JNJFOC-20060403500

PATIENT
  Sex: Male
  Weight: 116.58 kg

DRUGS (2)
  1. LEVAQUIN [Suspect]
     Indication: SINUSITIS
     Route: 048
  2. DEPAKOTE [Interacting]
     Indication: EPILEPSY
     Route: 048

REACTIONS (5)
  - CONVULSION [None]
  - DRUG INTERACTION [None]
  - EXCORIATION [None]
  - GRAND MAL CONVULSION [None]
  - MOUTH INJURY [None]
